FAERS Safety Report 8274976-9 (Version None)
Quarter: 2012Q2

REPORT INFORMATION
  Report Type: 
  Country: None (occurrence: None)
  Receive Date: 20120411
  Receipt Date: 20120405
  Transmission Date: 20120825
  Serious: Yes (Death, Hospitalization)
  Sender: FDA-Public Use
  Company Number: GB-ROCHE-1053454

PATIENT
  Sex: Female
  Weight: 72.5 kg

DRUGS (1)
  1. VEMURAFENIB [Suspect]
     Indication: MALIGNANT MELANOMA
     Dosage: DATOE OF LAST DOSE PRIOR TO SAE 22/MAR/2012 , PERMANENTLY DISCONTINUED ON 26/MAR/2012.
     Route: 048
     Dates: start: 20111129, end: 20120322

REACTIONS (1)
  - TORSADE DE POINTES [None]
